FAERS Safety Report 7970076 (Version 4)
Quarter: 2013Q2

REPORT INFORMATION
  Report Type: Spontaneous
  Country: IT (occurrence: IT)
  Receive Date: 20110601
  Receipt Date: 20130625
  Transmission Date: 20140414
  Serious: Yes (Other)
  Sender: FDA-Public Use
  Company Number: IT-PFIZER INC-2011116409

PATIENT
  Age: 23 Year
  Sex: Female
  Weight: 48 kg

DRUGS (13)
  1. FLUCONAZOLE [Suspect]
     Indication: SELF INJURIOUS BEHAVIOUR
     Dosage: 150 MG, UNK
     Route: 065
     Dates: start: 20110516, end: 20110516
  2. IBUPROFEN [Suspect]
     Indication: SELF INJURIOUS BEHAVIOUR
     Dosage: UNK
     Route: 048
     Dates: start: 20110516, end: 20110516
  3. NICOTINE [Suspect]
     Indication: SELF INJURIOUS BEHAVIOUR
     Dosage: UNK
     Route: 048
     Dates: start: 20110516, end: 20110516
  4. CEFIXORAL [Suspect]
     Indication: SELF INJURIOUS BEHAVIOUR
     Dosage: 400 MG, UNK
     Route: 048
     Dates: start: 20110516, end: 20110516
  5. VERMOX [Suspect]
     Indication: SELF INJURIOUS BEHAVIOUR
     Dosage: 100 MG, FREQUENCY UNSPECIFIED
     Route: 048
     Dates: start: 20110516, end: 20110516
  6. VOLTAREN [Suspect]
     Indication: SELF INJURIOUS BEHAVIOUR
     Dosage: UNK
     Route: 048
     Dates: start: 20110516, end: 20110516
  7. BENTELAN [Suspect]
     Indication: SELF INJURIOUS BEHAVIOUR
     Dosage: 0.5 MG, UNK
     Route: 048
     Dates: start: 20110516, end: 20110516
  8. TACHIPIRINA [Suspect]
     Indication: SELF INJURIOUS BEHAVIOUR
     Dosage: UNK
     Route: 048
     Dates: start: 20110516, end: 20110516
  9. MUSCORIL [Suspect]
     Indication: SELF INJURIOUS BEHAVIOUR
     Dosage: 4 MG, UNK
     Route: 048
     Dates: start: 20110516, end: 20110516
  10. ZIRTEC [Suspect]
     Indication: SELF INJURIOUS BEHAVIOUR
     Dosage: 10 MG, UNK
     Route: 048
     Dates: start: 20110516, end: 20110516
  11. MOMENDOL [Suspect]
     Indication: SELF INJURIOUS BEHAVIOUR
     Dosage: UNK
     Route: 048
     Dates: start: 20110516, end: 20110516
  12. FERLIXIT [Suspect]
     Indication: SELF INJURIOUS BEHAVIOUR
     Dosage: UNK
     Route: 048
     Dates: start: 20110516, end: 20110516
  13. LEXOTAN [Suspect]
     Indication: SELF INJURIOUS BEHAVIOUR
     Dosage: 0.25 %, UNK
     Route: 048
     Dates: start: 20110516, end: 20110516

REACTIONS (2)
  - Drug abuse [Unknown]
  - Self injurious behaviour [Unknown]
